FAERS Safety Report 5931007-0 (Version None)
Quarter: 2008Q4

REPORT INFORMATION
  Report Type: 
  Country: None (occurrence: None)
  Receive Date: 20081023
  Receipt Date: 20060511
  Transmission Date: 20090506
  Serious: Yes (Hospitalization, Other)
  Sender: FDA-Public Use
  Company Number: 2006AL002061

PATIENT
  Age: 66 Year

DRUGS (5)
  1. METFORMIN HYDROCHLORIDE [Suspect]
     Indication: TYPE 2 DIABETES MELLITUS
     Dosage: 850 MG;BID;PO
     Route: 048
     Dates: end: 20060417
  2. GLICLAZIDE [Concomitant]
  3. AMIODARONE HCL [Concomitant]
  4. CIPROFLOXACIN [Concomitant]
  5. FLOXACILLIN SODIUM [Concomitant]

REACTIONS (6)
  - HAEMODIALYSIS [None]
  - LACTIC ACIDOSIS [None]
  - METABOLIC DISORDER [None]
  - MULTI-ORGAN FAILURE [None]
  - RENAL FAILURE [None]
  - VENOUS OXYGEN SATURATION INCREASED [None]
